FAERS Safety Report 25166930 (Version 1)
Quarter: 2025Q2

REPORT INFORMATION
  Report Type: Spontaneous
  Country: CA (occurrence: CA)
  Receive Date: 20250407
  Receipt Date: 20250407
  Transmission Date: 20250717
  Serious: Yes (Death, Life-Threatening, Other)
  Sender: MYLAN
  Company Number: CA-MYLANLABS-2025M1029257

PATIENT
  Age: 19 Year
  Sex: Female

DRUGS (11)
  1. VENLAFAXINE [Suspect]
     Active Substance: VENLAFAXINE HYDROCHLORIDE
     Indication: Major depression
  2. VENLAFAXINE [Suspect]
     Active Substance: VENLAFAXINE HYDROCHLORIDE
  3. NORTRIPTYLINE HYDROCHLORIDE [Suspect]
     Active Substance: NORTRIPTYLINE HYDROCHLORIDE
     Indication: Major depression
     Dosage: 100 MILLIGRAM, HS (AT BEDTIME)
  4. RISPERIDONE [Suspect]
     Active Substance: RISPERIDONE
     Indication: Psychotic disorder
  5. RISPERIDONE [Suspect]
     Active Substance: RISPERIDONE
     Dosage: 3 MILLIGRAM, QD (DAILY)
  6. RISPERIDONE [Suspect]
     Active Substance: RISPERIDONE
     Dosage: 1 MILLIGRAM, BID (TWICE DAILY)
  7. RISPERIDONE [Suspect]
     Active Substance: RISPERIDONE
  8. OLANZAPINE [Suspect]
     Active Substance: OLANZAPINE
     Indication: Psychotic disorder
     Dosage: 5 MILLIGRAM, QD (ONCE DAILY)
  9. OLANZAPINE [Suspect]
     Active Substance: OLANZAPINE
  10. LOXAPINE [Suspect]
     Active Substance: LOXAPINE
     Indication: Product used for unknown indication
  11. DIPHENHYDRAMINE [Suspect]
     Active Substance: DIPHENHYDRAMINE
     Indication: Product used for unknown indication

REACTIONS (8)
  - Hyperprolactinaemia [Fatal]
  - Pulmonary embolism [Fatal]
  - Weight increased [Fatal]
  - Loss of consciousness [Fatal]
  - Respiratory arrest [Fatal]
  - Mydriasis [Fatal]
  - Hypotension [Fatal]
  - Pulse absent [Fatal]
